FAERS Safety Report 25567802 (Version 1)
Quarter: 2025Q3

REPORT INFORMATION
  Report Type: Spontaneous
  Country: US (occurrence: None)
  Receive Date: 20250716
  Receipt Date: 20250716
  Transmission Date: 20251021
  Serious: Yes (Hospitalization)
  Sender: FDA-CTU
  Company Number: None

PATIENT
  Age: 78 Year
  Sex: Male
  Weight: 110.2 kg

DRUGS (1)
  1. TALVEY [Suspect]
     Active Substance: TALQUETAMAB-TGVS
     Indication: Plasma cell myeloma
     Route: 058

REACTIONS (5)
  - Irritability [None]
  - Immune effector cell-associated neurotoxicity syndrome [None]
  - Dyscalculia [None]
  - Asthenia [None]
  - Dyslexia [None]

NARRATIVE: CASE EVENT DATE: 20250716
